FAERS Safety Report 14599558 (Version 2)
Quarter: 2018Q1

REPORT INFORMATION
  Report Type: Spontaneous
  Country: CA (occurrence: CA)
  Receive Date: 20180305
  Receipt Date: 20180320
  Transmission Date: 20180509
  Serious: Yes (Hospitalization)
  Sender: FDA-Public Use
  Company Number: PHHY2018CA031953

PATIENT
  Sex: Male

DRUGS (2)
  1. GLEEVEC [Suspect]
     Active Substance: IMATINIB MESYLATE
     Indication: MYELOPROLIFERATIVE NEOPLASM
  2. GLEEVEC [Suspect]
     Active Substance: IMATINIB MESYLATE
     Indication: EOSINOPHILIA
     Dosage: UNK
     Route: 065
     Dates: start: 201711

REACTIONS (2)
  - Neuromyelitis optica spectrum disorder [Recovered/Resolved with Sequelae]
  - Myelitis transverse [Recovered/Resolved with Sequelae]

NARRATIVE: CASE EVENT DATE: 201801
